FAERS Safety Report 16697060 (Version 3)
Quarter: 2019Q4

REPORT INFORMATION
  Report Type: Spontaneous
  Country: US (occurrence: US)
  Receive Date: 20190813
  Receipt Date: 20191007
  Transmission Date: 20200122
  Serious: No
  Sender: FDA-Public Use
  Company Number: US-PFIZER INC-2019338848

PATIENT
  Age: 68 Year
  Sex: Female
  Weight: 104.31 kg

DRUGS (14)
  1. LEVOTHYROXINE. [Concomitant]
     Active Substance: LEVOTHYROXINE
     Indication: THYROID CANCER
     Dosage: 100 UG, 1X/DAY
     Route: 048
     Dates: start: 2006
  2. AMLODIPINE [Concomitant]
     Active Substance: AMLODIPINE BESYLATE
     Indication: ORTHOSTATIC INTOLERANCE
     Dosage: UNK
     Dates: start: 2017
  3. VITAMIN D3 [Concomitant]
     Active Substance: CHOLECALCIFEROL
     Dosage: 50000 IU, WEEKLY
     Route: 048
  4. EXEMESTANE. [Suspect]
     Active Substance: EXEMESTANE
     Indication: BREAST CANCER
     Dosage: 25 MG, 1X/DAY
     Route: 048
     Dates: start: 201704
  5. CARVEDILOL. [Concomitant]
     Active Substance: CARVEDILOL
     Indication: ORTHOSTATIC INTOLERANCE
     Dosage: UNK
     Dates: start: 2015
  6. CARVEDILOL. [Concomitant]
     Active Substance: CARVEDILOL
     Dosage: 12.5 MG, 2X/DAY
     Route: 048
     Dates: start: 2017
  7. ASPIRIN CHILDREN [Concomitant]
     Active Substance: ASPIRIN
     Dosage: UNK
     Dates: start: 2014
  8. IRON GLYCINATE [Concomitant]
     Active Substance: FERROUS BISGLYCINATE
     Dosage: UNK
     Dates: start: 2019
  9. IRON GLYCINATE [Concomitant]
     Active Substance: FERROUS BISGLYCINATE
     Dosage: 28 MG, UNK
  10. AMLODIPINE [Concomitant]
     Active Substance: AMLODIPINE BESYLATE
     Dosage: 2.5 MG, DAILY
     Route: 048
     Dates: start: 20180519
  11. NORTRIPTYLINE [Concomitant]
     Active Substance: NORTRIPTYLINE
     Dosage: UNK
     Dates: start: 2019
  12. VITAMIN D3 [Concomitant]
     Active Substance: CHOLECALCIFEROL
     Indication: PARATHYROID DISORDER
     Dosage: UNK
     Dates: start: 2006
  13. VITAMIN B12 [Concomitant]
     Active Substance: CYANOCOBALAMIN
     Dosage: 100 UG, UNK
     Dates: start: 201903
  14. CALCIUM [Concomitant]
     Active Substance: CALCIUM
     Indication: PARATHYROID DISORDER
     Dosage: 600 MG, DAILY, (300MG CHEW-2 CHEWS TAKEN BY MOUTH DAILY)
     Route: 048
     Dates: start: 2006

REACTIONS (4)
  - Movement disorder [Not Recovered/Not Resolved]
  - Musculoskeletal stiffness [Not Recovered/Not Resolved]
  - Parkinsonism [Unknown]
  - Trigger finger [Unknown]

NARRATIVE: CASE EVENT DATE: 2018
